FAERS Safety Report 9221536 (Version 1)
Quarter: 2013Q2

REPORT INFORMATION
  Report Type: Spontaneous
  Country: IT (occurrence: None)
  Receive Date: 20130408
  Receipt Date: 20130408
  Transmission Date: 20140414
  Serious: Yes (Hospitalization)
  Sender: FDA-Public Use
  Company Number: AUR-APL-2013-02766

PATIENT
  Age: 86 Year
  Sex: Female

DRUGS (7)
  1. METFORMIN (METFORMIN) [Suspect]
     Indication: DIABETES MELLITUS
     Dosage: 3 UNIT DOSE DAILY, ORAL
     Route: 048
     Dates: end: 20130301
  2. DILATREND(CARVEDILOL) [Concomitant]
  3. LASIX(FUROSEMIDE) [Concomitant]
  4. APROVEL(IRBESARTAN) [Concomitant]
  5. TORVAST(ATORVASTATIN CALCIUM) [Concomitant]
  6. CATAPRESSAN TTS(CLONIDINE) [Concomitant]
  7. CARDIRENE(ACETYLSALICYLATE LYSINE) [Concomitant]

REACTIONS (2)
  - General physical health deterioration [None]
  - Renal failure acute [None]
